FAERS Safety Report 24087076 (Version 1)
Quarter: 2024Q3

REPORT INFORMATION
  Report Type: Spontaneous
  Country: US (occurrence: US)
  Receive Date: 20240713
  Receipt Date: 20240713
  Transmission Date: 20241017
  Serious: Yes (Other)
  Sender: AMGEN
  Company Number: US-AMGEN-USASP2024134489

PATIENT

DRUGS (1)
  1. TEPROTUMUMAB [Suspect]
     Active Substance: TEPROTUMUMAB
     Indication: Endocrine ophthalmopathy
     Dosage: UNK
     Route: 065

REACTIONS (18)
  - Sepsis [Unknown]
  - Liver abscess [Unknown]
  - Pyelonephritis [Unknown]
  - Pancreatitis necrotising [Unknown]
  - Deafness neurosensory [Unknown]
  - Adverse event [Unknown]
  - Abdominal pain [Unknown]
  - Vomiting [Unknown]
  - Hyperglycaemia [Unknown]
  - Weight decreased [Unknown]
  - Nausea [Unknown]
  - Diarrhoea [Unknown]
  - Alopecia [Unknown]
  - Headache [Unknown]
  - Fatigue [Unknown]
  - Amenorrhoea [Unknown]
  - Tinnitus [Recovered/Resolved]
  - Muscle spasms [Unknown]
